FAERS Safety Report 7588129-0 (Version None)
Quarter: 2011Q2

REPORT INFORMATION
  Report Type: 
  Country: None (occurrence: None)
  Receive Date: 20110627
  Receipt Date: 20110617
  Transmission Date: 20111010
  Serious: Yes (Hospitalization, Other)
  Sender: FDA-Public Use
  Company Number: 2010AC000377

PATIENT
  Sex: Female

DRUGS (6)
  1. AVANDIA [Concomitant]
  2. TEQUIN [Concomitant]
  3. DIGOXIN [Suspect]
     Dosage: 0.125 MG;QD;PO
     Dates: start: 20020504
  4. PROPOXYPHENE HYDROCHLORIDE [Concomitant]
  5. DIGOXIN [Suspect]
     Dosage: 0.25 MG; QD
     Dates: start: 20020701, end: 20021001
  6. DIGOXIN [Suspect]
     Indication: ARRHYTHMIA
     Dosage: 0.25 MG;QD;PO
     Route: 048
     Dates: start: 20070501, end: 20091201

REACTIONS (8)
  - DEPRESSION [None]
  - CARDIAC FAILURE CONGESTIVE [None]
  - HEART RATE INCREASED [None]
  - ANXIETY [None]
  - MULTIPLE INJURIES [None]
  - CARDIAC DISORDER [None]
  - PAIN [None]
  - RENAL FAILURE [None]
